FAERS Safety Report 12908412 (Version 2)
Quarter: 2016Q4

REPORT INFORMATION
  Report Type: Spontaneous
  Country: US (occurrence: US)
  Receive Date: 20161103
  Receipt Date: 20161123
  Transmission Date: 20170207
  Serious: Yes (Life-Threatening, Hospitalization, Other)
  Sender: FDA-Public Use
  Company Number: US-ELI_LILLY_AND_COMPANY-US201611000531

PATIENT
  Age: 66 Year
  Sex: Female

DRUGS (7)
  1. HUMALOG [Suspect]
     Active Substance: INSULIN LISPRO
     Dosage: UNK UNK, UNKNOWN
     Route: 065
  2. HUMALOG [Suspect]
     Active Substance: INSULIN LISPRO
     Indication: TYPE 2 DIABETES MELLITUS
     Dosage: UNK, UNKNOWN
     Route: 065
     Dates: start: 2012
  3. HUMALOG MIX75/25 [Suspect]
     Active Substance: INSULIN LISPRO
     Indication: TYPE 2 DIABETES MELLITUS
     Dosage: UNK, UNKNOWN
     Route: 065
     Dates: start: 2012
  4. HUMALOG MIX75/25 [Suspect]
     Active Substance: INSULIN LISPRO
     Indication: TYPE 2 DIABETES MELLITUS
     Dosage: 30 U, BID
     Route: 065
     Dates: start: 2014
  5. HUMALOG [Suspect]
     Active Substance: INSULIN LISPRO
     Indication: TYPE 2 DIABETES MELLITUS
     Dosage: UNK UNK, UNKNOWN
     Route: 065
     Dates: start: 2014
  6. COREG [Suspect]
     Active Substance: CARVEDILOL
     Indication: HYPERTENSION
  7. HUMALOG MIX75/25 [Suspect]
     Active Substance: INSULIN LISPRO
     Dosage: 30 U, BID
     Route: 065

REACTIONS (27)
  - Cardiac failure congestive [Unknown]
  - Weight increased [Unknown]
  - Vision blurred [Unknown]
  - Musculoskeletal pain [Unknown]
  - Laziness [Unknown]
  - Blood glucose decreased [Unknown]
  - Feeling cold [Unknown]
  - Arthralgia [Unknown]
  - Somnolence [Unknown]
  - Back pain [Unknown]
  - Restlessness [Unknown]
  - Cataract [Unknown]
  - Visual impairment [Unknown]
  - Blood glucose increased [Unknown]
  - Malaise [Unknown]
  - Pain [Unknown]
  - Blood pressure increased [Unknown]
  - Neck pain [Unknown]
  - Hypersensitivity [Unknown]
  - Drug ineffective [Unknown]
  - Dry skin [Unknown]
  - Dizziness [Unknown]
  - Respiratory arrest [Unknown]
  - Thrombosis [Unknown]
  - Nasal congestion [Unknown]
  - Weight loss poor [Unknown]
  - Swelling [Unknown]

NARRATIVE: CASE EVENT DATE: 20161013
